FAERS Safety Report 23352160 (Version 1)
Quarter: 2023Q4

REPORT INFORMATION
  Report Type: Spontaneous
  Country: US (occurrence: US)
  Receive Date: 20231229
  Receipt Date: 20231229
  Transmission Date: 20240109
  Serious: Yes (Other)
  Sender: FDA-Public Use
  Company Number: US-JNJFOC-20231258722

PATIENT
  Sex: Female

DRUGS (2)
  1. SPRAVATO [Suspect]
     Active Substance: ESKETAMINE
     Indication: Product used for unknown indication
     Dates: start: 202311
  2. SPRAVATO [Suspect]
     Active Substance: ESKETAMINE
     Dates: start: 2023

REACTIONS (2)
  - Urinary retention [Recovered/Resolved]
  - Dysuria [Unknown]

NARRATIVE: CASE EVENT DATE: 20230101
